FAERS Safety Report 5157797-5 (Version None)
Quarter: 2006Q4

REPORT INFORMATION
  Report Type: 
  Country: None (occurrence: None)
  Receive Date: 20061121
  Receipt Date: 20061121
  Transmission Date: 20070319
  Serious: Yes (Hospitalization)
  Sender: FDA-Public Use
  Company Number: None

PATIENT
  Age: 62 Year
  Sex: Male

DRUGS (5)
  1. CRESTOR [Suspect]
     Indication: HYPERLIPIDAEMIA
  2. ASPIRIN [Concomitant]
  3. COZAAR [Concomitant]
  4. SNTHYROID [Concomitant]
  5. TOPROL-XL [Concomitant]

REACTIONS (2)
  - ANGIONEUROTIC OEDEMA [None]
  - PETECHIAE [None]
